FAERS Safety Report 20745932 (Version 1)
Quarter: 2022Q2

REPORT INFORMATION
  Report Type: Spontaneous
  Country: US (occurrence: None)
  Receive Date: 20220424
  Receipt Date: 20220424
  Transmission Date: 20220721
  Serious: Yes (Other)
  Sender: FDA-Public Use
  Company Number: None

PATIENT
  Age: 61 Year
  Sex: Female
  Weight: 85.95 kg

DRUGS (11)
  1. CALCITRIOL [Suspect]
     Active Substance: CALCITRIOL
     Indication: Vitamin D
     Dosage: OTHER STRENGTH : MCG;?OTHER QUANTITY : 90 CAPSULE(S);?FREQUENCY : DAILY;?
     Route: 048
     Dates: start: 20220423, end: 20220424
  2. CLONIDINE [Concomitant]
     Active Substance: CLONIDINE
  3. 02 [Concomitant]
  4. METOPROLOL [Concomitant]
     Active Substance: METOPROLOL
  5. AMLODIPINE [Concomitant]
     Active Substance: AMLODIPINE BESYLATE
  6. INSULIN NOS [Concomitant]
     Active Substance: INSULIN NOS
  7. ASPIRIN [Concomitant]
     Active Substance: ASPIRIN
  8. TAMOXIFEN [Concomitant]
     Active Substance: TAMOXIFEN
  9. MEGACE [Concomitant]
     Active Substance: MEGESTROL ACETATE
  10. children^s daily vitamin [Concomitant]
  11. hair skin nails vitamin [Concomitant]

REACTIONS (4)
  - Dysgeusia [None]
  - Foaming at mouth [None]
  - Nausea [None]
  - Chills [None]

NARRATIVE: CASE EVENT DATE: 20220424
